FAERS Safety Report 20355561 (Version 2)
Quarter: 2022Q1

REPORT INFORMATION
  Report Type: Spontaneous
  Country: FR (occurrence: FR)
  Receive Date: 20220120
  Receipt Date: 20220308
  Transmission Date: 20220423
  Serious: Yes (Hospitalization)
  Sender: FDA-Public Use
  Company Number: None

PATIENT
  Age: 46 Year
  Sex: Female

DRUGS (8)
  1. BUPRENORPHINE [Suspect]
     Active Substance: BUPRENORPHINE
     Indication: Product used for unknown indication
     Dosage: NOT STATED, 24MG/D MISUSED UP TO 7 CP OF 8MG I.E. 56 MG/D)
     Route: 065
     Dates: start: 202102
  2. SUBOXONE [Suspect]
     Active Substance: BUPRENORPHINE HYDROCHLORIDE\NALOXONE HYDROCHLORIDE
     Indication: Product used for unknown indication
     Dosage: UNK UNK, QD (UP TO 56 MG/D)
     Route: 048
     Dates: start: 2018, end: 20210213
  3. TOBACCO LEAF [Suspect]
     Active Substance: TOBACCO LEAF
     Indication: Product used for unknown indication
     Dosage: 12 DOSAGE FORM, QD (12 CIG/DAY)
     Route: 055
     Dates: start: 1998
  4. CANNABIS SATIVA SUBSP. INDICA TOP [Suspect]
     Active Substance: CANNABIS SATIVA SUBSP. INDICA TOP
     Indication: Product used for unknown indication
     Dosage: UNK UNK, QD (4 TO 5 JOINTS/DAY)
     Route: 055
     Dates: start: 1998
  5. ALCOHOL [Suspect]
     Active Substance: ALCOHOL
     Indication: Product used for unknown indication
     Dosage: UNK (NOT STATED)
     Route: 048
  6. BROMAZEPAM [Suspect]
     Active Substance: BROMAZEPAM
     Indication: Product used for unknown indication
     Dosage: UNK UNK, QD (UP TO 48 MG/DAY)
     Route: 048
     Dates: start: 2005, end: 20210213
  7. BROMAZEPAM [Suspect]
     Active Substance: BROMAZEPAM
     Dosage: UNK (BETWEEN 30 AND 48 MG/DAY)
     Route: 048
     Dates: start: 2005, end: 20190213
  8. CODEINE [Suspect]
     Active Substance: CODEINE
     Indication: Sedation
     Dosage: UNK UNK, QD (UP TO 48 TAB/DAY)
     Route: 048
     Dates: start: 2000, end: 2018

REACTIONS (8)
  - Tachycardia [Recovered/Resolved]
  - Incoherent [Recovered/Resolved]
  - Delusional disorder, persecutory type [Recovered/Resolved]
  - Logorrhoea [Recovered/Resolved]
  - Sleep disorder [Recovering/Resolving]
  - Hallucination [Recovered/Resolved]
  - Drug abuse [Not Recovered/Not Resolved]
  - Incorrect product administration duration [Recovering/Resolving]

NARRATIVE: CASE EVENT DATE: 20050101
